FAERS Safety Report 7263991-X (Version None)
Quarter: 2011Q1

REPORT INFORMATION
  Report Type: 
  Country: None (occurrence: None)
  Receive Date: 20110130
  Receipt Date: 20101101
  Transmission Date: 20110831
  Serious: No
  Sender: FDA-Public Use
  Company Number: US-ABBOTT-10P-163-0682653-00

PATIENT
  Age: 62 Year
  Sex: Female

DRUGS (5)
  1. HUMIRA [Suspect]
     Indication: CROHN'S DISEASE
     Dates: start: 20100901
  2. PAXIL [Concomitant]
     Indication: DEPRESSION
  3. METOPROLOL [Concomitant]
     Indication: MITRAL VALVE PROLAPSE
  4. CHOLESTYRAMINE [Concomitant]
     Indication: DIARRHOEA
     Dosage: 1 PACKET DAILY
  5. MULTI-VITAMINS [Concomitant]
     Indication: VITAMIN SUPPLEMENTATION

REACTIONS (7)
  - HEADACHE [None]
  - PAIN [None]
  - RASH ERYTHEMATOUS [None]
  - SKIN EXFOLIATION [None]
  - ACNE [None]
  - BACK PAIN [None]
  - NECK MASS [None]
